FAERS Safety Report 8085609-9 (Version None)
Quarter: 2012Q1

REPORT INFORMATION
  Report Type: 
  Country: None (occurrence: None)
  Receive Date: 20120128
  Receipt Date: 20110403
  Transmission Date: 20120608
  Serious: No
  Sender: FDA-Public Use
  Company Number: US-ABBOTT-11P-163-0716021-00

PATIENT
  Age: 41 Year
  Sex: Female

DRUGS (4)
  1. HUMIRA [Suspect]
     Indication: CROHN'S DISEASE
     Dates: start: 20101201, end: 20110301
  2. PRILOSEC [Concomitant]
     Indication: GASTROOESOPHAGEAL REFLUX DISEASE
     Dosage: DAILY
  3. CARDIZEM [Concomitant]
     Indication: ARTERIOSPASM CORONARY
     Dosage: 80 MG DAILY
  4. LIALDA [Concomitant]
     Indication: CROHN'S DISEASE
     Dosage: 2 PILLS DAILY

REACTIONS (2)
  - PARAESTHESIA [None]
  - PAIN [None]
